FAERS Safety Report 13387037 (Version 1)
Quarter: 2017Q1

REPORT INFORMATION
  Report Type: Spontaneous
  Country: GB (occurrence: GB)
  Receive Date: 20170330
  Receipt Date: 20170330
  Transmission Date: 20170429
  Serious: Yes (Other)
  Sender: FDA-Public Use
  Company Number: PHHY2017GB040581

PATIENT
  Age: 64 Year
  Sex: Male
  Weight: 71.66 kg

DRUGS (1)
  1. LATANOPROST. [Suspect]
     Active Substance: LATANOPROST
     Indication: ANTIBIOTIC PROPHYLAXIS
     Dosage: 50 MG, QD (AT NIGHT. AS DIRECTED.)
     Route: 047
     Dates: start: 20160630

REACTIONS (4)
  - Vision blurred [Not Recovered/Not Resolved]
  - Eye irritation [Not Recovered/Not Resolved]
  - Blindness [Not Recovered/Not Resolved]
  - Eye pain [Not Recovered/Not Resolved]

NARRATIVE: CASE EVENT DATE: 20160830
